FAERS Safety Report 11950802 (Version 1)
Quarter: 2016Q1

REPORT INFORMATION
  Report Type: Report from Study
  Country: FR (occurrence: FR)
  Receive Date: 20160126
  Receipt Date: 20160126
  Transmission Date: 20160526
  Serious: Yes (Death, Hospitalization)
  Sender: FDA-Public Use
  Company Number: FR-ACTELION-A-CH2016-129962

PATIENT
  Age: 69 Year
  Sex: Male
  Weight: 80 kg

DRUGS (3)
  1. TRACLEER [Suspect]
     Active Substance: BOSENTAN
     Indication: SCLERODERMA ASSOCIATED DIGITAL ULCER
     Dosage: 125 MG, BID
     Route: 048
     Dates: start: 20130807, end: 20160104
  2. TRACLEER [Suspect]
     Active Substance: BOSENTAN
     Dosage: 62.5 MG, BID
     Route: 048
     Dates: start: 20130712, end: 20130806
  3. ILOPROST TROMETAMINE [Concomitant]
     Route: 042

REACTIONS (11)
  - Pulmonary sepsis [Unknown]
  - Mydriasis [Fatal]
  - Acute respiratory distress syndrome [Unknown]
  - Neurological examination abnormal [Fatal]
  - Skin ulcer [Unknown]
  - Loss of consciousness [Fatal]
  - Dyskinesia [Fatal]
  - Coronary artery stenosis [Unknown]
  - Haemorrhage intracranial [Fatal]
  - Stress cardiomyopathy [Unknown]
  - Troponin increased [Unknown]

NARRATIVE: CASE EVENT DATE: 20160104
